FAERS Safety Report 17920027 (Version 1)
Quarter: 2020Q2

REPORT INFORMATION
  Report Type: Report from Study
  Country: EG (occurrence: EG)
  Receive Date: 20200620
  Receipt Date: 20200620
  Transmission Date: 20200714
  Serious: Yes (Other)
  Sender: FDA-Public Use
  Company Number: NVSC2019EG085027

PATIENT
  Sex: Female

DRUGS (4)
  1. GLIVEC [Suspect]
     Active Substance: IMATINIB MESYLATE
     Indication: CHRONIC MYELOID LEUKAEMIA
     Dosage: 2 DF, BID (4 DF)
     Route: 065
  2. GLIVEC [Suspect]
     Active Substance: IMATINIB MESYLATE
     Dosage: 1 DF (400 MG)
     Route: 065
  3. TASIGNA [Suspect]
     Active Substance: NILOTINIB
     Indication: CHRONIC MYELOID LEUKAEMIA
     Dosage: 4 DF (800 MG), QD
     Route: 065
  4. TASIGNA [Suspect]
     Active Substance: NILOTINIB
     Dosage: 2 DF (200 MG), QD
     Route: 065

REACTIONS (5)
  - Drug ineffective [Not Recovered/Not Resolved]
  - Psychological trauma [Not Recovered/Not Resolved]
  - Anaemia [Not Recovered/Not Resolved]
  - Bone marrow failure [Not Recovered/Not Resolved]
  - Therapy non-responder [Not Recovered/Not Resolved]
